FAERS Safety Report 5174204-7 (Version None)
Quarter: 2006Q4

REPORT INFORMATION
  Report Type: 
  Country: None (occurrence: None)
  Receive Date: 20061214
  Receipt Date: 20061204
  Transmission Date: 20070319
  Serious: Yes (Hospitalization)
  Sender: FDA-Public Use
  Company Number: AU-ROCHE-473603

PATIENT
  Age: 44 Year
  Sex: Female
  Weight: 84 kg

DRUGS (7)
  1. DACLIZUMAB [Suspect]
     Route: 042
  2. DACLIZUMAB [Suspect]
     Route: 042
  3. MYCOPHENOLATE MOFETIL [Suspect]
     Route: 048
     Dates: start: 20040414
  4. TACROLIMUS [Suspect]
     Route: 048
     Dates: start: 20040414
  5. PREDNISOLONE [Suspect]
     Route: 065
     Dates: start: 20041009
  6. RAMIPRIL [Concomitant]
     Dates: start: 20040925
  7. SIMVASTATIN [Concomitant]
     Dates: start: 20010615

REACTIONS (2)
  - ESCHERICHIA INFECTION [None]
  - PYELONEPHRITIS [None]
